FAERS Safety Report 9815617 (Version 3)
Quarter: 2019Q3

REPORT INFORMATION
  Report Type: Spontaneous
  Country: PL (occurrence: PL)
  Receive Date: 20140114
  Receipt Date: 20190808
  Transmission Date: 20191005
  Serious: Yes (Life-Threatening, Hospitalization, Other)
  Sender: FDA-Public Use
  Company Number: PL-ELI_LILLY_AND_COMPANY-PL201401003030

PATIENT
  Age: 16 Year
  Sex: Male
  Weight: 65.5 kg

DRUGS (8)
  1. OLANZAPINE. [Suspect]
     Active Substance: OLANZAPINE
     Indication: PSYCHOTIC DISORDER
     Dosage: 10 MG, DAILY
     Route: 048
  2. DEXTROMETHORPHAN [Concomitant]
     Active Substance: DEXTROMETHORPHAN
     Indication: SUBSTANCE USE
     Dosage: UNK UNK, UNKNOWN
     Route: 065
  3. LORAZEPAM. [Concomitant]
     Active Substance: LORAZEPAM
     Indication: PSYCHOTIC DISORDER
     Dosage: UNK UNK, PRN
     Route: 065
  4. LORAZEPAM. [Concomitant]
     Active Substance: LORAZEPAM
     Indication: AGITATION
     Dosage: UNK UNK, DAILY
     Route: 065
  5. HALOPERIDOL. [Concomitant]
     Active Substance: HALOPERIDOL
     Indication: AGGRESSION
     Dosage: 2.5 MG, UNKNOWN
     Route: 030
  6. LEVOMEPROMAZINE [Suspect]
     Active Substance: LEVOMEPROMAZINE
     Dosage: 37.5 MG, DAILY
     Route: 030
  7. LEVOMEPROMAZINE [Suspect]
     Active Substance: LEVOMEPROMAZINE
     Indication: PSYCHOTIC DISORDER
     Dosage: 25 MG, DAILY
     Route: 030
  8. PSEUDOEPHEDRINE. [Concomitant]
     Active Substance: PSEUDOEPHEDRINE HYDROCHLORIDE
     Indication: SUBSTANCE USE
     Dosage: UNK UNK, UNKNOWN
     Route: 065

REACTIONS (20)
  - Cardiac disorder [Unknown]
  - Neuroleptic malignant syndrome [Recovering/Resolving]
  - Delirium [Unknown]
  - Eating disorder symptom [Unknown]
  - Dehydration [Unknown]
  - Somnolence [Unknown]
  - Mutism [Unknown]
  - Weight decreased [Unknown]
  - Decreased activity [Unknown]
  - Insomnia [Unknown]
  - Toxicity to various agents [Recovering/Resolving]
  - Generalised tonic-clonic seizure [Unknown]
  - Agitation [Unknown]
  - Dystonia [Unknown]
  - Screaming [Unknown]
  - Respiratory failure [Unknown]
  - Coma [Recovered/Resolved]
  - Aggression [Unknown]
  - Hallucination, visual [Unknown]
  - Extrapyramidal disorder [Unknown]
